FAERS Safety Report 6886107-8 (Version None)
Quarter: 2010Q3

REPORT INFORMATION
  Report Type: 
  Country: None (occurrence: None)
  Receive Date: 20100729
  Receipt Date: 20080213
  Transmission Date: 20110219
  Serious: No
  Sender: FDA-Public Use
  Company Number: US-PFIZER INC-2008011400

PATIENT
  Sex: Female
  Weight: 64.5 kg

DRUGS (3)
  1. CELEBREX [Suspect]
     Indication: OSTEOARTHRITIS
     Dates: start: 20080102
  2. LISINOPRIL [Concomitant]
     Indication: HYPERTENSION
  3. THIOGUANINE [Concomitant]
     Indication: PSORIASIS

REACTIONS (1)
  - DRUG INEFFECTIVE [None]
